FAERS Safety Report 6029148-5 (Version None)
Quarter: 2009Q1

REPORT INFORMATION
  Report Type: 
  Country: None (occurrence: None)
  Receive Date: 20090102
  Receipt Date: 20081223
  Transmission Date: 20090719
  Serious: Yes (Hospitalization)
  Sender: FDA-Public Use
  Company Number: 20085928

PATIENT
  Sex: Male

DRUGS (1)
  1. LIORESAL [Suspect]
     Indication: MUSCLE SPASTICITY
     Dosage: MCG, DAILY, INTHRTHECAL
     Route: 037

REACTIONS (4)
  - CATHETER RELATED COMPLICATION [None]
  - HYPERTONIA [None]
  - PAIN [None]
  - TEARFULNESS [None]
